FAERS Safety Report 8487424-0 (Version None)
Quarter: 2012Q3

REPORT INFORMATION
  Report Type: 
  Country: None (occurrence: None)
  Receive Date: 20120705
  Receipt Date: 20120626
  Transmission Date: 20120928
  Serious: Yes (Other)
  Sender: FDA-Public Use
  Company Number: US-ELI_LILLY_AND_COMPANY-US201207000862

PATIENT

DRUGS (3)
  1. THERAPEUTIC RADIOPHARMACEUTICALS [Concomitant]
  2. GEMCITABINE HYDROCHLORIDE [Suspect]
     Indication: ADENOCARCINOMA PANCREAS
     Dosage: 1000 MG/M2, WEEKLY (1/W)
     Route: 042
  3. ERLOTINIB HYDROCHLORIDE [Concomitant]
     Indication: ADENOCARCINOMA PANCREAS
     Dosage: 100 MG, QD
     Route: 048

REACTIONS (1)
  - GASTROINTESTINAL TOXICITY [None]
